FAERS Safety Report 23517800 (Version 2)
Quarter: 2024Q1

REPORT INFORMATION
  Report Type: Spontaneous
  Country: FR (occurrence: FR)
  Receive Date: 20240213
  Receipt Date: 20240226
  Transmission Date: 20240410
  Serious: Yes (Other)
  Sender: FDA-Public Use
  Company Number: None

PATIENT
  Age: 57 Year
  Sex: Male
  Weight: 57 kg

DRUGS (4)
  1. RILPIVIRINE [Suspect]
     Active Substance: RILPIVIRINE
     Indication: HIV infection
     Route: 030
     Dates: start: 20231012, end: 20240111
  2. VOCABRIA [Suspect]
     Active Substance: CABOTEGRAVIR SODIUM
     Indication: HIV infection
     Route: 030
     Dates: start: 20231012, end: 20240111
  3. VOCABRIA [Concomitant]
     Active Substance: CABOTEGRAVIR SODIUM
     Route: 048
     Dates: start: 20230801, end: 20231012
  4. EDURANT [Concomitant]
     Active Substance: RILPIVIRINE HYDROCHLORIDE
     Route: 048
     Dates: start: 20230801, end: 20231012

REACTIONS (4)
  - Abnormal dreams [Not Recovered/Not Resolved]
  - Myalgia [Not Recovered/Not Resolved]
  - Arthralgia [Not Recovered/Not Resolved]
  - Injection site pain [Recovered/Resolved]

NARRATIVE: CASE EVENT DATE: 20231124
